FAERS Safety Report 25095889 (Version 1)
Quarter: 2025Q1

REPORT INFORMATION
  Report Type: Spontaneous
  Country: GB (occurrence: GB)
  Receive Date: 20250319
  Receipt Date: 20250319
  Transmission Date: 20250409
  Serious: Yes (Hospitalization, Other)
  Sender: GLAXOSMITHKLINE
  Company Number: None

PATIENT

DRUGS (1)
  1. SUMATRIPTAN [Suspect]
     Active Substance: SUMATRIPTAN
     Indication: Migraine
     Route: 065
     Dates: start: 20250311, end: 20250311

REACTIONS (2)
  - Myoclonus [Recovered/Resolved with Sequelae]
  - Feeling jittery [Recovering/Resolving]

NARRATIVE: CASE EVENT DATE: 20250311
